FAERS Safety Report 8095308-5 (Version None)
Quarter: 2012Q1

REPORT INFORMATION
  Report Type: 
  Country: None (occurrence: None)
  Receive Date: 20120129
  Receipt Date: 20111229
  Transmission Date: 20120608
  Serious: No
  Sender: FDA-Public Use
  Company Number: US-ABBOTT-11P-163-0887839-00

PATIENT
  Age: 50 Year
  Sex: Female

DRUGS (6)
  1. HUMIRA [Suspect]
     Indication: PSORIASIS
     Dates: start: 20111118
  2. NEXIUM [Concomitant]
     Indication: GASTROOESOPHAGEAL REFLUX DISEASE
     Dosage: DAILY
  3. XYZAL [Concomitant]
     Indication: HYPERSENSITIVITY
     Dosage: DAILY
  4. HUMIRA [Suspect]
  5. ESTRADIOL [Concomitant]
     Indication: HYSTERECTOMY
     Dosage: DAILY
  6. SYNTHROID [Concomitant]
     Indication: THYROID CYST
     Dosage: DAILY

REACTIONS (7)
  - FUNGAL INFECTION [None]
  - VIITH NERVE PARALYSIS [None]
  - RESPIRATORY TRACT INFECTION [None]
  - FALL [None]
  - EYELID PTOSIS [None]
  - PRURITUS [None]
  - ERYTHEMA [None]
